FAERS Safety Report 4308553-9 (Version None)
Quarter: 2004Q1

REPORT INFORMATION
  Report Type: 
  Country: None (occurrence: None)
  Receive Date: 20040227
  Receipt Date: 20040217
  Transmission Date: 20041129
  Serious: Yes (Hospitalization, Other)
  Sender: FDA-Public Use
  Company Number: NSADSS2002032398

PATIENT
  Age: 44 Year
  Sex: Female
  Weight: 90.7194 kg

DRUGS (2)
  1. REMICADE [Suspect]
     Indication: RHEUMATOID ARTHRITIS
     Dosage: 300 MG, INTRAVENOUS DRIP
     Route: 041
     Dates: start: 20020829, end: 20020829
  2. REMICADE [Suspect]
     Indication: RHEUMATOID ARTHRITIS
     Dosage: 300 MG, INTRAVENOUS DRIP
     Route: 041
     Dates: start: 20020808

REACTIONS (4)
  - COCCIDIOIDOMYCOSIS [None]
  - DRUG TOXICITY [None]
  - PERICARDIAL EFFUSION [None]
  - PNEUMONITIS [None]
